FAERS Safety Report 9512546 (Version 2)
Quarter: 2014Q1

REPORT INFORMATION
  Report Type: Spontaneous
  Country: US (occurrence: US)
  Receive Date: 20130910
  Receipt Date: 20140310
  Transmission Date: 20141002
  Serious: Yes (Other)
  Sender: FDA-Public Use
  Company Number: US-ASTELLAS-2013US006266

PATIENT
  Sex: Male

DRUGS (1)
  1. XTANDI [Suspect]
     Indication: PROSTATE CANCER
     Dosage: 80 MG, UID/QD
     Route: 048

REACTIONS (3)
  - Underdose [Unknown]
  - Drug ineffective [Unknown]
  - Malignant neoplasm progression [Unknown]
